FAERS Safety Report 25892165 (Version 1)
Quarter: 2025Q4

REPORT INFORMATION
  Report Type: Report from Study
  Country: SA (occurrence: SA)
  Receive Date: 20251007
  Receipt Date: 20251007
  Transmission Date: 20260118
  Serious: Yes (Hospitalization)
  Sender: EMD SERONO INC
  Company Number: SA-Merck Healthcare KGaA-2025049728

PATIENT
  Age: 47 Year
  Sex: Female

DRUGS (2)
  1. MAVENCLAD [Suspect]
     Active Substance: CLADRIBINE
     Indication: Multiple sclerosis
     Dosage: YEAR ONE WEEK ONE THERAPY
  2. MAVENCLAD [Suspect]
     Active Substance: CLADRIBINE
     Dosage: YEAR ONE WEEK TWO THERAPY

REACTIONS (3)
  - Asthenopia [Unknown]
  - Eye pain [Unknown]
  - Eye colour change [Unknown]

NARRATIVE: CASE EVENT DATE: 20250925
